FAERS Safety Report 20598445 (Version 1)
Quarter: 2022Q1

REPORT INFORMATION
  Report Type: Spontaneous
  Country: US (occurrence: US)
  Receive Date: 20220315
  Receipt Date: 20220315
  Transmission Date: 20220423
  Serious: No
  Sender: FDA-Public Use
  Company Number: US-PFIZER INC-202200352278

PATIENT
  Age: 37 Year
  Sex: Female

DRUGS (1)
  1. XELJANZ XR [Suspect]
     Active Substance: TOFACITINIB CITRATE
     Indication: Rheumatoid arthritis
     Dosage: 11 MG, 1X/DAY

REACTIONS (12)
  - Fatigue [Recovering/Resolving]
  - Depression [Unknown]
  - Anxiety [Unknown]
  - Gait disturbance [Unknown]
  - Arthralgia [Unknown]
  - Swelling [Unknown]
  - Asthenia [Unknown]
  - Joint stiffness [Recovering/Resolving]
  - Pain [Unknown]
  - Feeling abnormal [Unknown]
  - Impaired quality of life [Unknown]
  - Condition aggravated [Unknown]

NARRATIVE: CASE EVENT DATE: 20210101
